FAERS Safety Report 5677193-1 (Version None)
Quarter: 2008Q1

REPORT INFORMATION
  Report Type: 
  Country: None (occurrence: None)
  Receive Date: 20080318
  Receipt Date: 20080314
  Transmission Date: 20080703
  Serious: Yes (Disabling, Other)
  Sender: FDA-Public Use
  Company Number: US-GDP-08403609

PATIENT
  Sex: Female

DRUGS (4)
  1. LIDOCAINE [Suspect]
     Indication: LASER THERAPY
     Dosage: (TOPICAL)
     Route: 061
     Dates: start: 20080220, end: 20080220
  2. TECHNICAL DISINFECTANTS [Suspect]
     Indication: PROPHYLAXIS
     Dosage: (OTHER)
     Route: 050
  3. ANAESTHETICS FOR TOPICAL USE [Concomitant]
  4. SODIUM CHLORIDE [Concomitant]

REACTIONS (2)
  - CHEMICAL BURNS OF EYE [None]
  - CONJUNCTIVITIS [None]
